FAERS Safety Report 7466874-5 (Version None)
Quarter: 2011Q2

REPORT INFORMATION
  Report Type: 
  Country: None (occurrence: None)
  Receive Date: 20110509
  Receipt Date: 20110503
  Transmission Date: 20111010
  Serious: Yes (Hospitalization)
  Sender: FDA-Public Use
  Company Number: US-WATSON-2011-04867

PATIENT
  Age: 48 Year
  Sex: Male

DRUGS (1)
  1. METOPROLOL TARTRATE [Suspect]
     Indication: HYPERTENSION
     Dosage: 12.5 MG, BID
     Route: 065

REACTIONS (2)
  - STRESS CARDIOMYOPATHY [None]
  - WITHDRAWAL SYNDROME [None]
